FAERS Safety Report 18392586 (Version 2)
Quarter: 2020Q4

REPORT INFORMATION
  Report Type: Spontaneous
  Country: US (occurrence: US)
  Receive Date: 20201016
  Receipt Date: 20201126
  Transmission Date: 20210114
  Serious: Yes (Other)
  Sender: FDA-Public Use
  Company Number: US-ROCHE-2692056

PATIENT
  Age: 61 Year
  Sex: Male
  Weight: 80.81 kg

DRUGS (2)
  1. ALTEPLASE. [Suspect]
     Active Substance: ALTEPLASE
  2. ALTEPLASE. [Suspect]
     Active Substance: ALTEPLASE
     Indication: PRODUCT USED FOR UNKNOWN INDICATION
     Dosage: ONGOING: NO
     Route: 065

REACTIONS (3)
  - Exposure via skin contact [Unknown]
  - No adverse event [Unknown]
  - Product container issue [Unknown]

NARRATIVE: CASE EVENT DATE: 20201003
